FAERS Safety Report 25376323 (Version 1)
Quarter: 2025Q2

REPORT INFORMATION
  Report Type: Spontaneous
  Country: US (occurrence: US)
  Receive Date: 20250529
  Receipt Date: 20250529
  Transmission Date: 20250716
  Serious: Yes (Hospitalization)
  Sender: MERCK SHARP & DOHME LLC
  Company Number: US-009507513-2287479

PATIENT
  Age: 71 Year
  Sex: Female

DRUGS (16)
  1. KEYTRUDA [Suspect]
     Active Substance: PEMBROLIZUMAB
     Indication: Lung neoplasm malignant
     Route: 042
     Dates: start: 20250424
  2. XANAX [Concomitant]
     Active Substance: ALPRAZOLAM
  3. AMIODARONE [Concomitant]
     Active Substance: AMIODARONE
  4. ANASTROZOLE [Concomitant]
     Active Substance: ANASTROZOLE
  5. ELIQUIS [Concomitant]
     Active Substance: APIXABAN
  6. LIPITOR [Concomitant]
     Active Substance: ATORVASTATIN CALCIUM
  7. IMURAN [Concomitant]
     Active Substance: AZATHIOPRINE
  8. SYMBICORT [Concomitant]
     Active Substance: BUDESONIDE\FORMOTEROL FUMARATE DIHYDRATE
  9. CALCIUM [Concomitant]
     Active Substance: CALCIUM
  10. Vitamin D, [Concomitant]
  11. folic acid, [Concomitant]
  12. Multivitamin, [Concomitant]
  13. PRILOSEC, [Concomitant]
  14. OXYCODONE [Concomitant]
     Active Substance: OXYCODONE
  15. trazadone, [Concomitant]
  16. Senna Docusate. [Concomitant]

REACTIONS (2)
  - Colectomy [Unknown]
  - Product dose omission issue [Unknown]

NARRATIVE: CASE EVENT DATE: 20250515
